FAERS Safety Report 14790012 (Version 1)
Quarter: 2018Q2

REPORT INFORMATION
  Report Type: Spontaneous
  Country: GB (occurrence: GB)
  Receive Date: 20180423
  Receipt Date: 20180423
  Transmission Date: 20180711
  Serious: Yes (Other)
  Sender: FDA-Public Use
  Company Number: PHHY2018GB070319

PATIENT
  Age: 28 Year
  Sex: Female
  Weight: 60 kg

DRUGS (6)
  1. CEFRADINE [Suspect]
     Active Substance: CEPHRADINE
     Indication: POSTOPERATIVE WOUND INFECTION
     Dosage: 2000 MG, QD
     Route: 048
     Dates: start: 20180130
  2. METRONIDAZOLE. [Suspect]
     Active Substance: METRONIDAZOLE
     Indication: POSTOPERATIVE WOUND INFECTION
     Dosage: 800 MG, QD
     Route: 048
     Dates: start: 20180130
  3. METRONIDAZOLE. [Suspect]
     Active Substance: METRONIDAZOLE
     Dosage: 800 MG, QD
     Route: 048
     Dates: start: 20180205
  4. CEFRADINE [Suspect]
     Active Substance: CEPHRADINE
     Dosage: 2000 MG, QD
     Route: 048
     Dates: start: 20180205
  5. CERAZETTE (DESOGESTREL) [Concomitant]
     Active Substance: DESOGESTREL
     Indication: PRODUCT USED FOR UNKNOWN INDICATION
     Route: 065
  6. AERIUS [Concomitant]
     Active Substance: DESLORATADINE
     Indication: PRODUCT USED FOR UNKNOWN INDICATION
     Route: 065

REACTIONS (5)
  - Abdominal pain [Not Recovered/Not Resolved]
  - Pruritus [Not Recovered/Not Resolved]
  - Dry eye [Not Recovered/Not Resolved]
  - Back pain [Not Recovered/Not Resolved]
  - Fatigue [Not Recovered/Not Resolved]

NARRATIVE: CASE EVENT DATE: 20180201
